FAERS Safety Report 10566989 (Version 1)
Quarter: 2014Q4

REPORT INFORMATION
  Report Type: Spontaneous
  Country: IT (occurrence: IT)
  Receive Date: 20141105
  Receipt Date: 20141105
  Transmission Date: 20150529
  Serious: Yes (Hospitalization)
  Sender: FDA-Public Use
  Company Number: IT-ABBVIE-14P-083-1303893-00

PATIENT
  Age: 20 Year
  Sex: Male

DRUGS (3)
  1. DEPAKINE CHRONO [Suspect]
     Active Substance: VALPROATE SODIUM
     Indication: PSYCHOTIC DISORDER
     Dosage: EXTENDED RELEASE
     Route: 048
  2. HALOPERIDOL DECANOATE. [Suspect]
     Active Substance: HALOPERIDOL DECANOATE
     Indication: PSYCHOTIC DISORDER
     Route: 048
  3. DELORAZEPAM [Suspect]
     Active Substance: DELORAZEPAM
     Indication: PSYCHOTIC DISORDER
     Route: 048

REACTIONS (2)
  - Hypertonia [Recovered/Resolved with Sequelae]
  - Dystonia [Recovered/Resolved with Sequelae]

NARRATIVE: CASE EVENT DATE: 20140116
